FAERS Safety Report 8270127-5 (Version None)
Quarter: 2012Q2

REPORT INFORMATION
  Report Type: 
  Country: None (occurrence: None)
  Receive Date: 20120410
  Receipt Date: 20120405
  Transmission Date: 20120825
  Serious: Yes (Other)
  Sender: FDA-Public Use
  Company Number: PHHY2012DE022932

PATIENT
  Sex: Female
  Weight: 58 kg

DRUGS (4)
  1. ZOLADEX [Concomitant]
     Indication: BREAST CANCER
     Dosage: UNK UKN, UNK
  2. ZOMETA [Suspect]
     Indication: BREAST CANCER
     Dosage: 4 MG, EVERY 6 MONTHS
     Route: 042
  3. LEVOTHYROXINE SODIUM [Concomitant]
     Route: 048
     Dates: start: 19900101
  4. TAMOXIFEN CITRATE [Concomitant]
     Indication: BREAST CANCER
     Dates: start: 20091223

REACTIONS (1)
  - BLOOD PRESSURE SYSTOLIC INCREASED [None]
